FAERS Safety Report 6072716-5 (Version None)
Quarter: 2009Q1

REPORT INFORMATION
  Report Type: 
  Country: None (occurrence: None)
  Receive Date: 20090210
  Receipt Date: 20090206
  Transmission Date: 20090719
  Serious: Yes (Hospitalization, Disabling)
  Sender: FDA-Public Use
  Company Number: JP-B.I. PHARMACEUTICALS,INC./RIDGEFIELD-2007-BP-24777NB

PATIENT
  Sex: Female

DRUGS (22)
  1. MICARDIS [Suspect]
     Indication: HYPERTENSION
     Dosage: 40MG
     Route: 048
     Dates: start: 20061031
  2. AMARYL [Concomitant]
     Dosage: 3MG
     Route: 048
     Dates: start: 20061031
  3. MELBIN [Concomitant]
     Dosage: 1500MG
     Route: 048
     Dates: start: 20061031, end: 20071101
  4. ALDACTONE [Concomitant]
     Indication: HYPERTENSION
     Dosage: 25MG
     Route: 048
     Dates: start: 20071001
  5. CALBLOCK [Concomitant]
     Indication: HYPERTENSION
     Dosage: 16MG
     Route: 048
     Dates: start: 20061226
  6. GLUCOBAY [Concomitant]
     Dosage: 300MG
     Route: 048
     Dates: start: 20070424, end: 20070531
  7. KINEDAK [Concomitant]
     Dosage: 3ANZ
     Route: 048
     Dates: start: 20061031, end: 20071101
  8. LIPITOR [Concomitant]
     Dosage: 10MG
     Route: 048
     Dates: start: 20060829
  9. SEIBULE (MIGLITOL) [Concomitant]
     Dosage: 225MG
     Route: 048
     Dates: start: 20070531, end: 20071114
  10. NELBIS [Concomitant]
     Dosage: 1500MG
     Route: 048
     Dates: start: 20060718
  11. PANALDINE [Concomitant]
     Indication: PROPHYLAXIS
     Dosage: 200MG
     Route: 048
     Dates: start: 20071108
  12. SIGMART [Concomitant]
     Indication: PROPHYLAXIS
     Dosage: 15MG
     Route: 048
     Dates: start: 20071108
  13. PARIET [Concomitant]
     Indication: PROPHYLAXIS
     Dosage: 10MG
     Route: 048
     Dates: start: 20080701
  14. LANTUS [Concomitant]
     Dosage: 26U
     Route: 058
     Dates: start: 20080701
  15. URINORM [Concomitant]
     Indication: HYPERURICAEMIA
     Dosage: 50MG
     Route: 048
     Dates: start: 20081117
  16. DIART [Concomitant]
     Indication: CARDIAC FAILURE
     Dosage: 30MG
     Route: 048
     Dates: start: 20071108
  17. ASPIRIN [Concomitant]
     Indication: PROPHYLAXIS
     Dosage: 100MG
     Route: 048
     Dates: start: 20071108
  18. LASIX [Concomitant]
     Indication: CARDIAC FAILURE
     Dosage: 60MG
     Route: 048
     Dates: start: 20071108
  19. ARTIST [Concomitant]
     Indication: CARDIAC FAILURE
     Dosage: 10MG
     Route: 048
     Dates: start: 20071108
  20. LUPRAC [Concomitant]
     Indication: CARDIAC FAILURE
     Dosage: 4MG
     Route: 048
     Dates: start: 20071108
  21. NITOROL R [Concomitant]
     Indication: CARDIAC FAILURE
     Dosage: 40MG
     Route: 048
     Dates: start: 20071108
  22. FLUITRAN [Concomitant]
     Indication: CARDIAC FAILURE
     Dosage: 2MG
     Route: 048
     Dates: start: 20071108

REACTIONS (3)
  - DIABETES MELLITUS [None]
  - MYOCARDIAL INFARCTION [None]
  - TRANSIENT ISCHAEMIC ATTACK [None]
